FAERS Safety Report 22334445 (Version 1)
Quarter: 2023Q2

REPORT INFORMATION
  Report Type: Spontaneous
  Country: GB (occurrence: GB)
  Receive Date: 20230517
  Receipt Date: 20230517
  Transmission Date: 20230722
  Serious: Yes (Other)
  Sender: FDA-Public Use
  Company Number: GB-MHRA-MED-202305091720458670-CMKRL

PATIENT
  Age: 71 Year
  Sex: Female
  Weight: 63 kg

DRUGS (1)
  1. CIPROFLOXACIN [Suspect]
     Active Substance: CIPROFLOXACIN
     Indication: Neutropenic sepsis
     Dosage: 250 MG BD
     Dates: start: 20230317, end: 20230418

REACTIONS (1)
  - Ototoxicity [Recovering/Resolving]

NARRATIVE: CASE EVENT DATE: 20230410
